FAERS Safety Report 8463500-3 (Version None)
Quarter: 2012Q2

REPORT INFORMATION
  Report Type: 
  Country: None (occurrence: None)
  Receive Date: 20120625
  Receipt Date: 20120621
  Transmission Date: 20120825
  Serious: Yes (Other)
  Sender: FDA-Public Use
  Company Number: US-PFIZER INC-2012130458

PATIENT
  Sex: Female
  Weight: 100 kg

DRUGS (4)
  1. ARTHROTEC [Suspect]
     Indication: INFLAMMATION
  2. ARTHROTEC [Suspect]
     Indication: ARTHRITIS
     Dosage: UNK, TWICE DAILY
     Route: 048
     Dates: start: 20090101, end: 20120417
  3. CYMBALTA [Concomitant]
     Dosage: 60 MG, ONCE A DAY
  4. LIPITOR [Concomitant]
     Dosage: 20 MG, ONCE A DAY

REACTIONS (3)
  - ARTHROPATHY [None]
  - MUSCULOSKELETAL PAIN [None]
  - HEART RATE IRREGULAR [None]
